FAERS Safety Report 8749927 (Version 2)
Quarter: 2012Q4

REPORT INFORMATION
  Report Type: Spontaneous
  Country: US (occurrence: None)
  Receive Date: 20120809
  Receipt Date: 20120914
  Transmission Date: 20130627
  Serious: Yes (Death, Hospitalization)
  Sender: FDA-Public Use
  Company Number: DSA_58817_2012

PATIENT
  Sex: Male

DRUGS (1)
  1. XENAZINE [Suspect]
     Indication: CHOREA
     Dosage: 1X/8 HOUrs
     Route: 048
     Dates: start: 20120327, end: 20120807

REACTIONS (2)
  - DEHYDRATION [None]
  - RENAL DISORDER [None]
